FAERS Safety Report 4304870-7 (Version None)
Quarter: 2004Q1

REPORT INFORMATION
  Report Type: 
  Country: None (occurrence: None)
  Receive Date: 20040226
  Receipt Date: 20031230
  Transmission Date: 20041129
  Serious: No
  Sender: FDA-Public Use
  Company Number: US-GLAXOSMITHKLINE-A0490982A

PATIENT

DRUGS (1)
  1. WELLBUTRIN [Suspect]
     Dosage: 3TAB SINGLE DOSE
     Route: 048

REACTIONS (4)
  - DIZZINESS [None]
  - DYSPEPSIA [None]
  - LETHARGY [None]
  - OVERDOSE [None]
